FAERS Safety Report 4451846-5 (Version None)
Quarter: 2004Q3

REPORT INFORMATION
  Report Type: 
  Country: None (occurrence: None)
  Receive Date: 20040915
  Receipt Date: 20040915
  Transmission Date: 20050211
  Serious: Yes (Hospitalization)
  Sender: FDA-Public Use
  Company Number: None

PATIENT
  Age: 37 Year
  Sex: Female
  Weight: 51.7101 kg

DRUGS (9)
  1. RISPERDAL [Suspect]
     Indication: CHILD ABUSE
     Dates: start: 20001115, end: 20040823
  2. RISPERDAL [Suspect]
     Indication: PSYCHOTIC DISORDER
     Dates: start: 20001115, end: 20040823
  3. LEXAPRO [Concomitant]
  4. VALPROIC ACID [Concomitant]
  5. TETRACYCLINE [Concomitant]
  6. RETIN-A [Concomitant]
  7. ASCORBIC ACID [Concomitant]
  8. FERROUS SULFATE TAB [Concomitant]
  9. OSCAL [Concomitant]

REACTIONS (3)
  - HYPOTENSION [None]
  - HYPOTHERMIA [None]
  - RHABDOMYOLYSIS [None]
